FAERS Safety Report 15867286 (Version 1)
Quarter: 2019Q1

REPORT INFORMATION
  Report Type: Spontaneous
  Country: US (occurrence: US)
  Receive Date: 20190125
  Receipt Date: 20190125
  Transmission Date: 20190417
  Serious: Yes (Other)
  Sender: FDA-Public Use
  Company Number: US-TEVA-2019-US-1001303

PATIENT
  Age: 40 Year
  Sex: Female

DRUGS (3)
  1. MODAFINIL. [Suspect]
     Active Substance: MODAFINIL
     Indication: PRODUCT USED FOR UNKNOWN INDICATION
     Route: 065
     Dates: start: 20180827
  2. REXULTI [Interacting]
     Active Substance: BREXPIPRAZOLE
     Indication: MAJOR DEPRESSION
     Dosage: 2 MILLIGRAM DAILY;
     Route: 065
     Dates: start: 20180716
  3. REXULTI [Interacting]
     Active Substance: BREXPIPRAZOLE
     Indication: ADJUVANT THERAPY
     Dosage: 1 MILLIGRAM DAILY;
     Route: 065

REACTIONS (2)
  - Psychotic disorder [Recovered/Resolved]
  - Drug interaction [Unknown]

NARRATIVE: CASE EVENT DATE: 201808
